FAERS Safety Report 5069120-5 (Version None)
Quarter: 2006Q3

REPORT INFORMATION
  Report Type: 
  Country: None (occurrence: None)
  Receive Date: 20060731
  Receipt Date: 20060718
  Transmission Date: 20061208
  Serious: Yes (Other)
  Sender: FDA-Public Use
  Company Number: 2006071163

PATIENT
  Age: 14 Year
  Sex: Female
  Weight: 45.3597 kg

DRUGS (1)
  1. VIBRAMYCIN [Suspect]
     Indication: LYME DISEASE
     Dosage: 20 ML (10 ML, 2 IN 1 D) ORAL
     Route: 048
     Dates: start: 20060527, end: 20060627

REACTIONS (7)
  - ABDOMINAL PAIN UPPER [None]
  - DIARRHOEA [None]
  - DYSPHAGIA [None]
  - EATING DISORDER [None]
  - HEADACHE [None]
  - PHARYNGOLARYNGEAL PAIN [None]
  - THROAT IRRITATION [None]
